FAERS Safety Report 4341739-6 (Version None)
Quarter: 2004Q2

REPORT INFORMATION
  Report Type: 
  Country: None (occurrence: None)
  Receive Date: 20040415
  Receipt Date: 20040326
  Transmission Date: 20050107
  Serious: Yes (Death, Other)
  Sender: FDA-Public Use
  Company Number: JP_040302776

PATIENT
  Age: 74 Year
  Sex: Male
  Weight: 51 kg

DRUGS (1)
  1. VANCOMYCIN [Suspect]
     Indication: STAPHYLOCOCCAL INFECTION
     Dosage: 500 MG/2 DAY
     Dates: start: 20021016, end: 20021115

REACTIONS (13)
  - BLOOD PRESSURE DECREASED [None]
  - CARDIO-RESPIRATORY ARREST [None]
  - CHOLECYSTITIS [None]
  - HAEMODIALYSIS [None]
  - HEPATIC FIBROSIS [None]
  - INFECTION [None]
  - LEG AMPUTATION [None]
  - LOSS OF CONSCIOUSNESS [None]
  - PNEUMONIA [None]
  - PSEUDARTHROSIS [None]
  - PULMONARY OEDEMA [None]
  - RENAL ATROPHY [None]
  - RENAL FAILURE ACUTE [None]
